FAERS Safety Report 16083382 (Version 1)
Quarter: 2019Q1

REPORT INFORMATION
  Report Type: Spontaneous
  Country: NL (occurrence: NL)
  Receive Date: 20190318
  Receipt Date: 20190318
  Transmission Date: 20190418
  Serious: Yes (Hospitalization)
  Sender: FDA-Public Use
  Company Number: NL-ACCORD-113469

PATIENT
  Age: 45 Year
  Sex: Female
  Weight: 94 kg

DRUGS (9)
  1. DEXAMETHASONE. [Concomitant]
     Active Substance: DEXAMETHASONE
     Dosage: STRENGTH 0,5MG, 1DD0,5MG
  2. HYDROXOCOBALAMIN [Concomitant]
     Active Substance: HYDROXOCOBALAMIN
  3. METHOTREXATE. [Suspect]
     Active Substance: METHOTREXATE
     Indication: DERMATOMYOSITIS
     Dosage: STRENGTH 2,5 MG (MILLIGRAM), 1  PER WEEK 8 PIECES
     Dates: start: 20180312, end: 20180820
  4. FOLIUMZUUR [Concomitant]
     Active Substance: FOLIC ACID
     Dosage: 10MG/WEEK
  5. HYDROXYCHLOROQUINE [Concomitant]
     Active Substance: HYDROXYCHLOROQUINE
     Dosage: STRENGTH 200MG, 2DD200MG
  6. DERMOVATE [Concomitant]
     Active Substance: CLOBETASOL
     Dosage: 2DD
  7. COLECALCIFEROL [Concomitant]
     Active Substance: CHOLECALCIFEROL
     Dosage: STRENGTH 50,000IE/ML, 1XPER WEEK 0,5MILLILITER
  8. PARACETAMOL [Concomitant]
     Active Substance: ACETAMINOPHEN
     Dosage: STRENGTH 500MG, 4DD1000MG
  9. BECLOMETASONE/FORMOTEROL [Concomitant]
     Dosage: 2DD2

REACTIONS (2)
  - Myelodysplastic syndrome [Not Recovered/Not Resolved]
  - Pancytopenia [Not Recovered/Not Resolved]

NARRATIVE: CASE EVENT DATE: 20180927
